FAERS Safety Report 4506528-8 (Version None)
Quarter: 2004Q4

REPORT INFORMATION
  Report Type: 
  Country: None (occurrence: None)
  Receive Date: 20041122
  Receipt Date: 20041116
  Transmission Date: 20050328
  Serious: Yes (Other)
  Sender: FDA-Public Use
  Company Number: US-JNJFOC-20041104143

PATIENT
  Sex: Female

DRUGS (1)
  1. DURAGESIC [Suspect]
     Indication: MEDICATION ERROR
     Route: 062
     Dates: start: 20041110, end: 20041112

REACTIONS (3)
  - APHASIA [None]
  - COMA [None]
  - MEDICATION ERROR [None]
